FAERS Safety Report 20324533 (Version 1)
Quarter: 2022Q1

REPORT INFORMATION
  Report Type: Spontaneous
  Country: None (occurrence: US)
  Receive Date: 20220111
  Receipt Date: 20220111
  Transmission Date: 20220424
  Serious: Yes (Death)
  Sender: FDA-Public Use
  Company Number: US-Akron, Inc.-2123826

PATIENT
  Age: 93 Year
  Sex: Male

DRUGS (3)
  1. BETIMOL [Suspect]
     Active Substance: TIMOLOL
     Indication: Glaucoma
  2. ZIOPTAN [Suspect]
     Active Substance: TAFLUPROST
     Route: 047
  3. HYDROCHLOROTHIAZIDE [Concomitant]
     Active Substance: HYDROCHLOROTHIAZIDE

REACTIONS (1)
  - Death [Fatal]

NARRATIVE: CASE EVENT DATE: 20211218
